FAERS Safety Report 8589598-X (Version None)
Quarter: 2012Q3

REPORT INFORMATION
  Report Type: 
  Country: None (occurrence: None)
  Receive Date: 20120813
  Receipt Date: 20120810
  Transmission Date: 20120928
  Serious: Yes (Hospitalization)
  Sender: FDA-Public Use
  Company Number: US-ACTELION-A-NJ2012-69310

PATIENT
  Age: 64 Year
  Sex: Female

DRUGS (4)
  1. VENTAVIS [Suspect]
     Indication: PULMONARY ARTERIAL HYPERTENSION
     Dosage: 5 ?G, 4-6 X/DAY
     Route: 055
     Dates: start: 20120425
  2. SILDENAFIL [Concomitant]
  3. LASIX [Concomitant]
  4. LETAIRIS [Concomitant]

REACTIONS (1)
  - CHOLECYSTITIS [None]
